FAERS Safety Report 6780697-1 (Version None)
Quarter: 2010Q2

REPORT INFORMATION
  Report Type: 
  Country: None (occurrence: None)
  Receive Date: 20100621
  Receipt Date: 20100614
  Transmission Date: 20101027
  Serious: Yes (Hospitalization)
  Sender: FDA-Public Use
  Company Number: US-BIOGENIDEC-2010BI019595

PATIENT
  Age: 42 Year
  Sex: Female
  Weight: 95 kg

DRUGS (1)
  1. AVONEX [Suspect]
     Indication: MULTIPLE SCLEROSIS
     Route: 030
     Dates: start: 20090826

REACTIONS (8)
  - INSOMNIA [None]
  - MULTIPLE SCLEROSIS [None]
  - MULTIPLE SCLEROSIS RELAPSE [None]
  - MUSCLE SPASMS [None]
  - OPTIC NEURITIS [None]
  - PRURITUS [None]
  - RASH [None]
  - SOMNOLENCE [None]
